FAERS Safety Report 16741444 (Version 1)
Quarter: 2019Q3

REPORT INFORMATION
  Report Type: Spontaneous
  Country: US (occurrence: US)
  Receive Date: 20190826
  Receipt Date: 20190826
  Transmission Date: 20191005
  Serious: Yes (Death)
  Sender: FDA-Public Use
  Company Number: US-PFIZER INC-2018487372

PATIENT
  Age: 84 Year
  Sex: Male

DRUGS (2)
  1. LYRICA [Suspect]
     Active Substance: PREGABALIN
     Indication: DIABETIC NEUROPATHY
     Dosage: 75 MG, 2X/DAY, (DAILY #60, 30 DAYS)
     Dates: start: 20181102
  2. LYRICA [Suspect]
     Active Substance: PREGABALIN
     Indication: NEUROLOGICAL SYMPTOM

REACTIONS (1)
  - Death [Fatal]
